FAERS Safety Report 7474896-3 (Version None)
Quarter: 2011Q2

REPORT INFORMATION
  Report Type: 
  Country: None (occurrence: None)
  Receive Date: 20110512
  Receipt Date: 20110506
  Transmission Date: 20111010
  Serious: Yes (Life-Threatening, Other)
  Sender: FDA-Public Use
  Company Number: JP-CELGENEUS-087-21880-10082443

PATIENT
  Sex: Male
  Weight: 46.1 kg

DRUGS (19)
  1. BIOFERMIN R [Concomitant]
     Dosage: 3 TABLET
     Route: 048
     Dates: start: 20100423, end: 20100816
  2. REVLIMID [Suspect]
     Dosage: 10 MILLIGRAM
     Route: 048
     Dates: start: 20100924, end: 20101014
  3. REVLIMID [Suspect]
     Dosage: 15 MILLIGRAM
     Route: 048
     Dates: start: 20101105, end: 20101125
  4. DEXAMETHASONE [Suspect]
     Dosage: 40 MILLIGRAM
     Route: 048
     Dates: start: 20101119, end: 20101122
  5. PARIET [Concomitant]
     Indication: PROPHYLAXIS
     Dosage: 10 MILLIGRAM
     Route: 048
     Dates: start: 20081101, end: 20100916
  6. CELECOX [Concomitant]
     Indication: MULTIPLE MYELOMA
     Dosage: 200 MILLIGRAM
     Route: 048
     Dates: start: 20101210, end: 20101213
  7. POLYFUL [Concomitant]
     Dosage: 3 PACKS
     Route: 048
     Dates: start: 20100817, end: 20100902
  8. DEXAMETHASONE [Suspect]
     Dosage: 20 MILLIGRAM
     Route: 048
     Dates: start: 20101214, end: 20101217
  9. NEOSTELIN GREEN [Concomitant]
     Dosage: AS MUCH AS SUFFICES
     Route: 065
     Dates: start: 20101112, end: 20101213
  10. REVLIMID [Suspect]
     Indication: MULTIPLE MYELOMA
     Dosage: 10 MILLIGRAM
     Route: 048
     Dates: start: 20100804, end: 20100824
  11. REVLIMID [Suspect]
     Dosage: 15 MILLIGRAM
     Route: 048
     Dates: start: 20101214, end: 20101220
  12. ALLOPURINOL [Concomitant]
     Dosage: 300 MILLIGRAM
     Route: 048
     Dates: start: 20081101, end: 20100916
  13. DEXAMETHASONE [Suspect]
     Indication: MULTIPLE MYELOMA
     Dosage: 40 MILLIGRAM
     Route: 048
     Dates: start: 20100804, end: 20100818
  14. MUCOSTA [Concomitant]
     Indication: PROPHYLAXIS
     Dosage: 300 MILLIGRAM
     Route: 048
     Dates: start: 20081101, end: 20100916
  15. BLOSTAR M [Concomitant]
     Indication: PROPHYLAXIS
     Dosage: 40 MILLIGRAM
     Route: 048
     Dates: start: 20101029, end: 20101213
  16. DEXAMETHASONE [Suspect]
     Dosage: 40 MILLIGRAM
     Route: 048
     Dates: start: 20100924, end: 20101015
  17. DEXAMETHASONE [Suspect]
     Dosage: 40 MILLIGRAM
     Route: 048
     Dates: start: 20101105, end: 20101108
  18. BIOFERMIN R [Concomitant]
     Dosage: 3 TABLET
     Route: 048
     Dates: start: 20100901, end: 20100930
  19. ALBUMIN TANNATE [Concomitant]
     Dosage: 3 GRAM
     Route: 048
     Dates: start: 20100913, end: 20100930

REACTIONS (10)
  - NEUTROPHIL COUNT DECREASED [None]
  - SEPSIS [None]
  - ANAEMIA [None]
  - ALOPECIA [None]
  - THROMBOCYTOPENIA [None]
  - DYSPHONIA [None]
  - BLOOD CREATININE INCREASED [None]
  - FEBRILE NEUTROPENIA [None]
  - DYSGEUSIA [None]
  - PRURITUS [None]
